FAERS Safety Report 16967157 (Version 2)
Quarter: 2020Q1

REPORT INFORMATION
  Report Type: Spontaneous
  Country: US (occurrence: US)
  Receive Date: 20191028
  Receipt Date: 20200117
  Transmission Date: 20200409
  Serious: Yes (Other)
  Sender: FDA-Public Use
  Company Number: US-BAUSCH-BL-2019-058092

PATIENT
  Sex: Female

DRUGS (2)
  1. PREDNISOLONE. [Suspect]
     Active Substance: PREDNISOLONE
     Indication: IRITIS
     Route: 065
     Dates: start: 2018
  2. RETISERT [Suspect]
     Active Substance: FLUOCINOLONE ACETONIDE
     Indication: PRODUCT USED FOR UNKNOWN INDICATION
     Dosage: SOMETIME IN WINTER OR SPRING OF 2008, IMPLANTED IN HER RIGHT EYE
     Route: 047
     Dates: start: 20080728, end: 20180426

REACTIONS (3)
  - Product use issue [Unknown]
  - Blindness unilateral [Unknown]
  - Iritis [Recovered/Resolved]

NARRATIVE: CASE EVENT DATE: 2018
